FAERS Safety Report 7250810-0 (Version None)
Quarter: 2011Q1

REPORT INFORMATION
  Report Type: 
  Country: None (occurrence: None)
  Receive Date: 20110119
  Receipt Date: 20110107
  Transmission Date: 20110831
  Serious: Yes (Hospitalization)
  Sender: FDA-Public Use
  Company Number: 025037

PATIENT
  Sex: Male

DRUGS (1)
  1. KEPPRA [Suspect]
     Indication: EPILEPSY
     Dosage: 250 MG BID ORAL, ORAL
     Route: 048
     Dates: start: 20101101

REACTIONS (3)
  - DISORIENTATION [None]
  - INSOMNIA [None]
  - CONFUSIONAL STATE [None]
